FAERS Safety Report 9310977 (Version 1)
Quarter: 2013Q2

REPORT INFORMATION
  Report Type: Spontaneous
  Country: FI (occurrence: FI)
  Receive Date: 20130528
  Receipt Date: 20130528
  Transmission Date: 20140414
  Serious: Yes (Other)
  Sender: FDA-Public Use
  Company Number: FI-009507513-1305FIN014807

PATIENT
  Age: 64 Year
  Sex: Female

DRUGS (5)
  1. IVEMEND [Suspect]
     Indication: PROPHYLAXIS OF NAUSEA AND VOMITING
     Dosage: STRENGTH:150MG/L
     Route: 042
     Dates: start: 20130404, end: 20130404
  2. TAXOTERE [Suspect]
     Indication: NEOPLASM MALIGNANT
     Dosage: STRENGTH: 150MG/L
     Route: 042
     Dates: start: 20130404, end: 20130404
  3. CARBOPLATIN [Suspect]
     Indication: NEOPLASM MALIGNANT
     Dosage: STRENGTH: 700MG/L
     Route: 042
     Dates: start: 20130404, end: 20130404
  4. AMORION COMP [Concomitant]
     Indication: INFLAMMATION
     Dosage: 2 DF DAILY
     Route: 048
  5. PREDNISOLON [Concomitant]
     Indication: LUNG DISORDER
     Dosage: 40 MG DAILY
     Route: 048
     Dates: start: 201303

REACTIONS (1)
  - Infusion site rash [Not Recovered/Not Resolved]
